FAERS Safety Report 6206000-3 (Version None)
Quarter: 2009Q2

REPORT INFORMATION
  Report Type: 
  Country: None (occurrence: None)
  Receive Date: 20090527
  Receipt Date: 20090527
  Transmission Date: 20091009
  Serious: No
  Sender: FDA-Public Use
  Company Number: None

PATIENT
  Sex: Male
  Weight: 75.8 kg

DRUGS (3)
  1. CARBOPLATIN [Suspect]
     Dosage: 2084 MG
  2. ERBITUX [Suspect]
     Dosage: 2247.5 MG
  3. TAXOL [Suspect]
     Dosage: 1151 MG

REACTIONS (7)
  - CHEST DISCOMFORT [None]
  - DYSPNOEA [None]
  - LUNG CONSOLIDATION [None]
  - NEUTROPHIL COUNT DECREASED [None]
  - PLATELET COUNT DECREASED [None]
  - TACHYCARDIA [None]
  - WHITE BLOOD CELL COUNT DECREASED [None]
